FAERS Safety Report 4669042-5 (Version None)
Quarter: 2005Q2

REPORT INFORMATION
  Report Type: 
  Country: None (occurrence: None)
  Receive Date: 20050523
  Receipt Date: 20050513
  Transmission Date: 20051028
  Serious: Yes (Other)
  Sender: FDA-Public Use
  Company Number: US-JNJFOC-20050106713

PATIENT
  Age: 60 Year
  Sex: Female

DRUGS (1)
  1. LEVAQUIN [Suspect]
     Indication: PNEUMONIA
     Route: 049

REACTIONS (12)
  - AGEUSIA [None]
  - ANOSMIA [None]
  - DEAFNESS [None]
  - DEPRESSION [None]
  - DRY MOUTH [None]
  - INSOMNIA [None]
  - MYALGIA [None]
  - NIGHTMARE [None]
  - PSYCHOTIC DISORDER [None]
  - TINNITUS [None]
  - TONGUE DISORDER [None]
  - VAGINAL INFECTION [None]
